FAERS Safety Report 24842606 (Version 3)
Quarter: 2025Q2

REPORT INFORMATION
  Report Type: Other
  Country: US (occurrence: US)
  Receive Date: 20250115
  Receipt Date: 20250618
  Transmission Date: 20250717
  Serious: Yes (Other)
  Sender: INTERCEPT PHARMACEUTICALS
  Company Number: US-INTERCEPT-PM2024002324

PATIENT
  Age: 58 Year
  Sex: Female

DRUGS (6)
  1. OCALIVA [Suspect]
     Active Substance: OBETICHOLIC ACID
     Indication: Primary biliary cholangitis
     Dosage: 5 MILLIGRAM, QD
     Route: 048
     Dates: start: 20230127, end: 20230210
  2. OCALIVA [Suspect]
     Active Substance: OBETICHOLIC ACID
     Dosage: 5 MILLIGRAM, QD
     Route: 048
     Dates: start: 2023
  3. URSODIOL [Concomitant]
     Active Substance: URSODIOL
     Indication: Primary biliary cholangitis
     Dosage: 300 MILLIGRAM, TID
     Route: 048
     Dates: start: 202209
  4. LINZESS [Concomitant]
     Active Substance: LINACLOTIDE
     Dosage: 145 MICROGRAM, QD (30 MINUTES PRIOR TO FIRST MEAL)
     Route: 065
  5. MAGNESIUM OXIDE [Concomitant]
     Active Substance: MAGNESIUM OXIDE
     Dosage: 500 MILLIGRAM, QD
     Route: 048
  6. SUPREP BOWEL PREP [Concomitant]
     Active Substance: MAGNESIUM SULFATE\POTASSIUM SULFATE\SODIUM SULFATE
     Indication: Colonoscopy

REACTIONS (9)
  - Aortic arteriosclerosis [Unknown]
  - Renal cyst haemorrhage [Unknown]
  - Spinal osteoarthritis [Unknown]
  - Pancreatic cyst [Not Recovered/Not Resolved]
  - Splenic lesion [Not Recovered/Not Resolved]
  - Yellow skin [Unknown]
  - Chromaturia [Unknown]
  - Blood bilirubin abnormal [Not Recovered/Not Resolved]
  - Ocular icterus [Unknown]

NARRATIVE: CASE EVENT DATE: 20230503
